FAERS Safety Report 6731443-9 (Version None)
Quarter: 2010Q2

REPORT INFORMATION
  Report Type: 
  Country: None (occurrence: None)
  Receive Date: 20100518
  Receipt Date: 20100518
  Transmission Date: 20101027
  Serious: No
  Sender: FDA-Public Use
  Company Number: None

PATIENT
  Age: 77 Year
  Sex: Female
  Weight: 89.8122 kg

DRUGS (1)
  1. PIPERACILLIN AND TAZOBACTAM [Suspect]
     Dosage: 67.5MG/ML EVERY 6 HOURS IV
     Route: 042

REACTIONS (2)
  - LIQUID PRODUCT PHYSICAL ISSUE [None]
  - PRODUCT GEL FORMATION [None]
